FAERS Safety Report 20148723 (Version 1)
Quarter: 2021Q4

REPORT INFORMATION
  Report Type: Spontaneous
  Country: US (occurrence: US)
  Receive Date: 20211204
  Receipt Date: 20211204
  Transmission Date: 20220304
  Serious: No
  Sender: FDA-Public Use
  Company Number: US-SA-SAC20211203000092

PATIENT
  Age: 48 Year
  Sex: Male

DRUGS (1)
  1. AMBIEN [Suspect]
     Active Substance: ZOLPIDEM TARTRATE
     Indication: Sleep disorder
     Dosage: UNK (STOPPED TAKING AMBIEN 11/2021.)
     Dates: start: 202108

REACTIONS (2)
  - Somnambulism [Unknown]
  - Product use issue [Unknown]
